FAERS Safety Report 9487022 (Version 1)
Quarter: 2013Q3

REPORT INFORMATION
  Report Type: Spontaneous
  Country: CH (occurrence: CH)
  Receive Date: 20130829
  Receipt Date: 20130829
  Transmission Date: 20140515
  Serious: Yes (Hospitalization)
  Sender: FDA-Public Use
  Company Number: CH-GLAXOSMITHKLINE-B0918637A

PATIENT
  Age: 63 Year
  Sex: Female

DRUGS (5)
  1. NEOTIGASON [Suspect]
     Indication: PSORIASIS
     Dosage: 10MG PER DAY
     Route: 048
     Dates: start: 201301, end: 20130328
  2. NEBIVOLOL [Concomitant]
     Dosage: 10MG PER DAY
  3. SIMVASTATIN [Concomitant]
     Dosage: 20MG PER DAY
     Dates: start: 2003
  4. PANTOPRAZOLE [Concomitant]
     Dosage: 20MG PER DAY
  5. VENLAFAXINE [Concomitant]
     Dates: start: 2003

REACTIONS (5)
  - Hepatitis cholestatic [Recovered/Resolved]
  - Mixed liver injury [Recovered/Resolved]
  - Jaundice [Recovered/Resolved]
  - Pyrexia [Recovered/Resolved]
  - Eosinophilia [Unknown]
